FAERS Safety Report 4684979-9 (Version None)
Quarter: 2005Q2

REPORT INFORMATION
  Report Type: 
  Country: None (occurrence: None)
  Receive Date: 20050531
  Receipt Date: 20050315
  Transmission Date: 20051028
  Serious: No
  Sender: FDA-Public Use
  Company Number: WAES 0503USA02527

PATIENT
  Age: 76 Year
  Sex: Female

DRUGS (4)
  1. ZETIA [Suspect]
     Dosage: 10 MG/DAILY/PO
     Route: 048
  2. LIPITOR [Concomitant]
  3. TRICOR [Concomitant]
  4. ASPIRIN [Concomitant]

REACTIONS (2)
  - CONTUSION [None]
  - RASH [None]
